FAERS Safety Report 4575989-0 (Version None)
Quarter: 2005Q1

REPORT INFORMATION
  Report Type: 
  Country: None (occurrence: None)
  Receive Date: 20050209
  Receipt Date: 20050201
  Transmission Date: 20050727
  Serious: Yes (Other)
  Sender: FDA-Public Use
  Company Number: PHEH2005US01517

PATIENT
  Age: 5 Year
  Sex: Male

DRUGS (1)
  1. ELIDEL [Suspect]
     Indication: ECZEMA
     Dosage: UNK, PRN
     Route: 061
     Dates: start: 20030303

REACTIONS (6)
  - CONDUCTIVE DEAFNESS [None]
  - MIDDLE EAR EFFUSION [None]
  - NASOPHARYNGITIS [None]
  - OTITIS MEDIA [None]
  - SKIN PAPILLOMA [None]
  - VIRAL INFECTION [None]
